FAERS Safety Report 6614137-X (Version None)
Quarter: 2010Q1

REPORT INFORMATION
  Report Type: 
  Country: None (occurrence: None)
  Receive Date: 20100303
  Receipt Date: 20100303
  Transmission Date: 20100710
  Serious: No
  Sender: FDA-Public Use
  Company Number: None

PATIENT
  Age: 64 Year
  Sex: Female

DRUGS (1)
  1. GADOLINIUM INJECTION [Suspect]
     Indication: NUCLEAR MAGNETIC RESONANCE IMAGING
     Dosage: 15 ML X1 IV
     Route: 042
     Dates: start: 20100216

REACTIONS (3)
  - CONTRAST MEDIA REACTION [None]
  - NAUSEA [None]
  - VOMITING [None]
